FAERS Safety Report 21684221 (Version 1)
Quarter: 2022Q4

REPORT INFORMATION
  Report Type: Spontaneous
  Country: US (occurrence: US)
  Receive Date: 20221205
  Receipt Date: 20221205
  Transmission Date: 20230113
  Serious: No
  Sender: FDA-Public Use
  Company Number: US-PERRIGO-22US007163

PATIENT
  Age: 79 Year
  Sex: Female
  Weight: 45.351 kg

DRUGS (1)
  1. GUAIFENESIN [Suspect]
     Active Substance: GUAIFENESIN
     Indication: Pulmonary congestion
     Dosage: 600 MG, SINGLE
     Route: 048
     Dates: start: 20220515, end: 20220515

REACTIONS (1)
  - Expired product administered [Unknown]

NARRATIVE: CASE EVENT DATE: 20220515
